FAERS Safety Report 9169334 (Version 1)
Quarter: 2013Q1

REPORT INFORMATION
  Report Type: Report from Study
  Country: HK (occurrence: HK)
  Receive Date: 20130318
  Receipt Date: 20130318
  Transmission Date: 20140127
  Serious: Yes (Death, Hospitalization)
  Sender: FDA-Public Use
  Company Number: HK-ROCHE-1200480

PATIENT
  Sex: 0

DRUGS (4)
  1. MYCOPHENOLATE MOFETIL [Suspect]
     Indication: LUPUS NEPHRITIS
     Dosage: DOSE: 1 G TWICE DAILY FOR FIRST 6 MONTHS AND 1.5- 2 GM NEXT 6 MONTHS
     Route: 065
  2. PREDNISOLONE [Suspect]
     Indication: LUPUS NEPHRITIS
     Dosage: DOSE:0.8 MG/KG/DAY TAPERED TO 7.5 MG/DAY FOR 6 MONTH, TAPERED FURTHER TO 5-7.5 MG/DAY AT 12-15 MONTH
     Route: 048
  3. AZATHIOPRINE [Concomitant]
     Route: 065
  4. METHYLPREDNISOLONE [Concomitant]
     Route: 042

REACTIONS (10)
  - Pneumonia [Fatal]
  - Acute myocardial infarction [Fatal]
  - Renal failure chronic [Fatal]
  - Neoplasm malignant [Fatal]
  - Infection [Unknown]
  - Anaemia [Unknown]
  - Leukopenia [Unknown]
  - Thrombocytopenia [Unknown]
  - Abdominal discomfort [Unknown]
  - Diabetes mellitus [Unknown]
